FAERS Safety Report 7530269-6 (Version None)
Quarter: 2011Q2

REPORT INFORMATION
  Report Type: 
  Country: None (occurrence: None)
  Receive Date: 20110531
  Receipt Date: 20110517
  Transmission Date: 20111010
  Serious: Yes (Death, Life-Threatening, Hospitalization, Other)
  Sender: FDA-Public Use
  Company Number: 2011MA006007

PATIENT
  Age: 36 Year
  Sex: Male

DRUGS (1)
  1. RISPERIDONE [Suspect]
     Indication: SCHIZOPHRENIA
     Dosage: 4 MG, QD, PO
     Route: 048

REACTIONS (15)
  - SINUS TACHYCARDIA [None]
  - AGITATION [None]
  - ACUTE PSYCHOSIS [None]
  - LOSS OF CONSCIOUSNESS [None]
  - AGGRESSION [None]
  - CYANOSIS [None]
  - CARDIAC ARREST [None]
  - STRIDOR [None]
  - UPPER AIRWAY OBSTRUCTION [None]
  - ELECTROCARDIOGRAM ST-T CHANGE [None]
  - CARDIO-RESPIRATORY ARREST [None]
  - BLOOD PRESSURE SYSTOLIC INCREASED [None]
  - BLOOD PRESSURE DECREASED [None]
  - MEDICATION ERROR [None]
  - DYSPNOEA [None]
